FAERS Safety Report 6171466-4 (Version None)
Quarter: 2009Q2

REPORT INFORMATION
  Report Type: 
  Country: None (occurrence: None)
  Receive Date: 20090424
  Receipt Date: 20080818
  Transmission Date: 20091009
  Serious: Yes (Hospitalization)
  Sender: FDA-Public Use
  Company Number: WAES 0808USA03101

PATIENT
  Age: 51 Year
  Sex: Male

DRUGS (10)
  1. SINGULAIR [Suspect]
     Indication: ASTHMA
     Dosage: 10 MG/DAILY/PO
     Route: 048
     Dates: end: 20080701
  2. SINGULAIR [Suspect]
     Indication: ASTHMA
     Dosage: 10 MG/DAILY/PO
     Route: 048
     Dates: start: 20070101
  3. LIPITOR [Concomitant]
  4. PROTONIX [Concomitant]
  5. [THERAPY UNSPECIFIED] [Concomitant]
  6. CARISOPRODOL [Concomitant]
  7. CLONAZEPAM [Concomitant]
  8. DOXEPIN HYDROCHLORIDE [Concomitant]
  9. FUROSEMIDE [Concomitant]
  10. MORPHINE [Concomitant]

REACTIONS (1)
  - PNEUMONIA [None]
